FAERS Safety Report 8488610-6 (Version None)
Quarter: 2012Q3

REPORT INFORMATION
  Report Type: 
  Country: None (occurrence: None)
  Receive Date: 20120705
  Receipt Date: 20120629
  Transmission Date: 20120928
  Serious: Yes (Life-Threatening, Hospitalization)
  Sender: FDA-Public Use
  Company Number: PHHY2012FR027939

PATIENT
  Age: 62 Year
  Sex: Female

DRUGS (8)
  1. TASIGNA [Suspect]
     Indication: CHRONIC MYELOID LEUKAEMIA
     Dosage: 800 MG, DAILY
     Dates: start: 20080401, end: 20120330
  2. EFFIENT [Concomitant]
  3. CRESTOR [Concomitant]
  4. LANTUS [Concomitant]
     Indication: TYPE 2 DIABETES MELLITUS
     Dosage: 58 IU, UNK
     Route: 058
  5. NEBIVOLOL HCL [Concomitant]
  6. OLMESARTAN MEDOXOMIL [Concomitant]
  7. KARDEGIC [Concomitant]
  8. INSULIN [Concomitant]
     Indication: TYPE 2 DIABETES MELLITUS
     Dosage: 20 MG, TID
     Route: 058

REACTIONS (2)
  - CEREBROVASCULAR ACCIDENT [None]
  - PARAESTHESIA [None]
